FAERS Safety Report 18423699 (Version 1)
Quarter: 2020Q4

REPORT INFORMATION
  Report Type: Spontaneous
  Country: US (occurrence: US)
  Receive Date: 20201024
  Receipt Date: 20201024
  Transmission Date: 20210114
  Serious: Yes (Life-Threatening, Hospitalization)
  Sender: FDA-Public Use
  Company Number: US-MACLEODS PHARMACEUTICALS US LTD-MAC2020028695

PATIENT

DRUGS (1)
  1. METFORMIN [Suspect]
     Active Substance: METFORMIN HYDROCHLORIDE
     Indication: PRODUCT USED FOR UNKNOWN INDICATION
     Dosage: 150 TO 200 500-MG METFORMIN TABLETS
     Route: 065

REACTIONS (8)
  - Depressed level of consciousness [Recovering/Resolving]
  - Condition aggravated [Recovering/Resolving]
  - Drug level increased [Recovering/Resolving]
  - Hypothermia [Recovering/Resolving]
  - Lactic acidosis [Recovering/Resolving]
  - Hypotension [Recovering/Resolving]
  - Acidosis [Recovering/Resolving]
  - Intentional overdose [Recovering/Resolving]
